FAERS Safety Report 4439020-X (Version None)
Quarter: 2004Q3

REPORT INFORMATION
  Report Type: 
  Country: None (occurrence: None)
  Receive Date: 20040901
  Receipt Date: 20020926
  Transmission Date: 20050211
  Serious: Yes (Life-Threatening, Hospitalization, Other)
  Sender: FDA-Public Use
  Company Number: US-BRISTOL-MYERS SQUIBB COMPANY-12053450

PATIENT
  Age: 11 Day
  Sex: Male
  Weight: 3 kg

DRUGS (5)
  1. SUSTIVA [Suspect]
     Dosage: EXPOSURE UNTIL WEEK 7 OF GESTATION.
     Route: 064
  2. VIRAMUNE [Suspect]
     Dosage: EXPOSURE FROM WEEK 23 OF GESTATION.
     Route: 064
  3. COMBIVIR [Suspect]
     Dosage: EXPOSURE UNTIL WEEK 7 OF GESTATION, THEN FROM WEEK 23 OF GESTATION.
     Route: 064
  4. RETROVIR [Suspect]
     Dosage: EXPOSURE DURING DELIVERY.  200 MG/20 ML
     Route: 064
     Dates: start: 20020814, end: 20020814
  5. RETROVIR [Suspect]
     Dosage: RETROVIR SYRUP 10 MG/ML
     Route: 048
     Dates: start: 20020814, end: 20020902

REACTIONS (8)
  - ANAEMIA MACROCYTIC [None]
  - CARDIAC MURMUR [None]
  - HYPERLACTACIDAEMIA [None]
  - HYPOGLYCAEMIA [None]
  - HYPOTONIA [None]
  - PLATELET COUNT INCREASED [None]
  - PREGNANCY [None]
  - TACHYCARDIA [None]
